FAERS Safety Report 9008899 (Version 1)
Quarter: 2013Q1

REPORT INFORMATION
  Report Type: Spontaneous
  Country: FR (occurrence: FR)
  Receive Date: 20130111
  Receipt Date: 20130111
  Transmission Date: 20140127
  Serious: Yes (Other)
  Sender: FDA-Public Use
  Company Number: FR-009507513-1301FRA003683

PATIENT
  Age: 35 Year
  Sex: Female

DRUGS (1)
  1. ZOELY [Suspect]
     Indication: CONTRACEPTION
     Dosage: UNK
     Route: 048
     Dates: start: 201206, end: 2012

REACTIONS (4)
  - Transient ischaemic attack [Unknown]
  - Visual impairment [Not Recovered/Not Resolved]
  - Photopsia [Unknown]
  - Visual impairment [Recovered/Resolved]
